FAERS Safety Report 23424229 (Version 1)
Quarter: 2024Q1

REPORT INFORMATION
  Report Type: Spontaneous
  Country: US (occurrence: US)
  Receive Date: 20240120
  Receipt Date: 20240120
  Transmission Date: 20240410
  Serious: Yes (Life-Threatening)
  Sender: FDA-Public Use
  Company Number: US-TEVA-VS-3142490

PATIENT
  Age: 53 Year

DRUGS (1)
  1. ALBUTEROL [Suspect]
     Active Substance: ALBUTEROL
     Indication: Product used for unknown indication
     Dosage: 90 MCG/DOSE
     Route: 055

REACTIONS (3)
  - Near death experience [Recovered/Resolved]
  - Dyspnoea [Recovered/Resolved]
  - Cyanosis [Unknown]
